FAERS Safety Report 5673150-X (Version None)
Quarter: 2008Q1

REPORT INFORMATION
  Report Type: 
  Country: None (occurrence: None)
  Receive Date: 20080319
  Receipt Date: 20080313
  Transmission Date: 20080703
  Serious: Yes (Disabling, Other)
  Sender: FDA-Public Use
  Company Number: CZ-BRISTOL-MYERS SQUIBB COMPANY-14113526

PATIENT
  Age: 72 Year
  Sex: Female

DRUGS (2)
  1. CEFZIL [Suspect]
     Indication: RESPIRATORY TRACT INFECTION
     Route: 048
     Dates: start: 20080304
  2. ZOLPIDEM [Interacting]
     Indication: INSOMNIA
     Dosage: 07-MAR-2008, THERAPY WAS INTERRUPTED
     Route: 048

REACTIONS (6)
  - CONFUSIONAL STATE [None]
  - DEPRESSED LEVEL OF CONSCIOUSNESS [None]
  - DISORIENTATION [None]
  - DRUG INTERACTION [None]
  - MALAISE [None]
  - SOMNOLENCE [None]
